FAERS Safety Report 24950629 (Version 1)
Quarter: 2025Q1

REPORT INFORMATION
  Report Type: Spontaneous
  Country: US (occurrence: None)
  Receive Date: 20250207
  Receipt Date: 20250207
  Transmission Date: 20250409
  Serious: Yes (Other)
  Sender: FDA-CTU
  Company Number: None

PATIENT
  Age: 6 Year
  Sex: Male

DRUGS (1)
  1. NORDITROPIN [Suspect]
     Active Substance: SOMATROPIN
     Indication: Growth hormone deficiency
     Dosage: FREQUENCY : DAILY;?
     Route: 058
     Dates: start: 20250107

REACTIONS (5)
  - Headache [None]
  - Abdominal pain upper [None]
  - Joint lock [None]
  - Crepitations [None]
  - Therapy interrupted [None]

NARRATIVE: CASE EVENT DATE: 20250204
